FAERS Safety Report 9934048 (Version 2)
Quarter: 2014Q1

REPORT INFORMATION
  Report Type: Spontaneous
  Country: US (occurrence: US)
  Receive Date: 20140228
  Receipt Date: 20140228
  Transmission Date: 20141002
  Serious: No
  Sender: FDA-Public Use
  Company Number: US-MYLANLABS-2013S1003353

PATIENT
  Age: 74 Year
  Sex: Female
  Weight: 81.19 kg

DRUGS (6)
  1. METFORMIN HYDROCHLORIDE TABLETS USP [Suspect]
     Indication: DIABETES MELLITUS
     Dosage: 5 TIMES DAILY WITH FOOD
     Route: 048
     Dates: start: 2009
  2. METFORMIN HYDROCHLORIDE TABLETS USP [Suspect]
     Indication: DIABETES MELLITUS
     Dosage: 5 TIMES DAILY WITH FOOD
     Route: 048
  3. NORVASC [Concomitant]
  4. TENORMIN [Concomitant]
  5. HCTZ [Concomitant]
  6. PRINIVIL [Concomitant]

REACTIONS (2)
  - Abdominal discomfort [Recovered/Resolved]
  - Diarrhoea [Recovered/Resolved]
